FAERS Safety Report 19115314 (Version 1)
Quarter: 2021Q2

REPORT INFORMATION
  Report Type: Spontaneous
  Country: US (occurrence: US)
  Receive Date: 20210409
  Receipt Date: 20210409
  Transmission Date: 20210717
  Serious: Yes (Other)
  Sender: FDA-Public Use
  Company Number: US-CADILA HEALTHCARE LIMITED-US-ZYDUS-064277

PATIENT

DRUGS (49)
  1. OMEPRAZOLE. [Interacting]
     Active Substance: OMEPRAZOLE
     Indication: PRODUCT USED FOR UNKNOWN INDICATION
     Dosage: 40 MILLIGRAM, QD
     Route: 065
  2. CARVEDILOL. [Concomitant]
     Active Substance: CARVEDILOL
     Indication: PRODUCT USED FOR UNKNOWN INDICATION
     Dosage: 6.25 MILLIGRAM, BID
  3. CETIRIZINE [Concomitant]
     Active Substance: CETIRIZINE HYDROCHLORIDE
     Indication: PRODUCT USED FOR UNKNOWN INDICATION
     Dosage: 10 MILLIGRAM, QD
  4. WARFARIN [Interacting]
     Active Substance: WARFARIN
     Dosage: 65 MILLIGRAM WEEKLY
     Route: 065
     Dates: start: 20190827
  5. WARFARIN [Interacting]
     Active Substance: WARFARIN
     Dosage: 65 MILLIGRAM WEEKLY
     Route: 065
     Dates: start: 20190917
  6. WARFARIN [Interacting]
     Active Substance: WARFARIN
     Dosage: 65 MILLIGRAM WEEKLY
     Route: 065
     Dates: start: 20191212
  7. LEVETIRACETAM. [Concomitant]
     Active Substance: LEVETIRACETAM
     Indication: EPILEPSY
     Dosage: 2000 MILLIGRAM, BID
     Route: 048
  8. FLUTICASONE. [Concomitant]
     Active Substance: FLUTICASONE
     Indication: PRODUCT USED FOR UNKNOWN INDICATION
     Dosage: UNK, QD
     Route: 045
  9. MUPIROCIN. [Concomitant]
     Active Substance: MUPIROCIN
     Indication: PRODUCT USED FOR UNKNOWN INDICATION
     Dosage: UNK UNK, TID
  10. RANITIDINE. [Concomitant]
     Active Substance: RANITIDINE
     Indication: PRODUCT USED FOR UNKNOWN INDICATION
     Dosage: 300 MILLIGRAM, QD
  11. CARBAMAZEPINE. [Suspect]
     Active Substance: CARBAMAZEPINE
     Indication: PRODUCT USED FOR UNKNOWN INDICATION
     Dosage: UNK MILLIGRAM, BID (600MG OF ORAL CARBAMAZEPINE IN THE DAYTIME AND 900MG IN THE NIGHT)
     Route: 048
  12. EPIDIOLEX [Suspect]
     Active Substance: CANNABIDIOL
     Dosage: 10 MILLIGRAM/KILOGRAM
     Route: 065
     Dates: start: 20190702
  13. WARFARIN [Interacting]
     Active Substance: WARFARIN
     Dosage: 80 MILLIGRAM WEEKLY
     Route: 065
     Dates: start: 20190205
  14. WARFARIN [Interacting]
     Active Substance: WARFARIN
     Dosage: 80 MILLIGRAM WEEKLY
     Route: 065
     Dates: start: 20190318
  15. WARFARIN [Interacting]
     Active Substance: WARFARIN
     Dosage: 80 MILLIGRAM WEEKLY
     Route: 065
     Dates: start: 20190411
  16. EPIDIOLEX [Suspect]
     Active Substance: CANNABIDIOL
     Dosage: 20 MILLIGRAM/KILOGRAM OVER 4 WEEKS
     Route: 065
     Dates: start: 20190625
  17. EPIDIOLEX [Suspect]
     Active Substance: CANNABIDIOL
     Dosage: 15 MILLIGRAM/KILOGRAM
     Route: 065
     Dates: start: 20190709
  18. EPIDIOLEX [Suspect]
     Active Substance: CANNABIDIOL
     Dosage: 20 MILLIGRAM/KILOGRAM
     Route: 065
     Dates: start: 20190716, end: 20191212
  19. FOLIC ACID. [Concomitant]
     Active Substance: FOLIC ACID
     Indication: PRODUCT USED FOR UNKNOWN INDICATION
     Dosage: 1 MILLIGRAM, QD
  20. TRAMADOL. [Concomitant]
     Active Substance: TRAMADOL
     Indication: PRODUCT USED FOR UNKNOWN INDICATION
     Dosage: 50 MILLIGRAM, QID
  21. WARFARIN [Interacting]
     Active Substance: WARFARIN
     Dosage: 80 MILLIGRAM WEEKLY
     Route: 065
     Dates: start: 20190502
  22. WARFARIN [Interacting]
     Active Substance: WARFARIN
     Dosage: 80 MILLIGRAM WEEKLY
     Route: 065
     Dates: start: 20190618
  23. WARFARIN [Interacting]
     Active Substance: WARFARIN
     Dosage: 80 MILLIGRAM WEEKLY
     Route: 065
     Dates: start: 20190625
  24. WARFARIN [Interacting]
     Active Substance: WARFARIN
     Dosage: 80 MILLIGRAM WEEKLY
     Route: 065
     Dates: start: 20190702
  25. WARFARIN [Interacting]
     Active Substance: WARFARIN
     Dosage: 65 MILLIGRAM WEEKLY
     Route: 065
     Dates: start: 20191119
  26. LACOSAMIDE. [Concomitant]
     Active Substance: LACOSAMIDE
     Indication: EPILEPSY
     Dosage: 50 MILLIGRAM, BID
     Route: 048
  27. ATORVASTATIN [Concomitant]
     Active Substance: ATORVASTATIN
     Indication: PRODUCT USED FOR UNKNOWN INDICATION
     Dosage: 40 MILLIGRAM, QD
  28. KETOCONAZOLE. [Concomitant]
     Active Substance: KETOCONAZOLE
     Indication: PRODUCT USED FOR UNKNOWN INDICATION
     Dosage: UNK UNK, BID
     Route: 061
  29. MYCOPHENOLIC ACID. [Concomitant]
     Active Substance: MYCOPHENOLIC ACID
     Indication: PRODUCT USED FOR UNKNOWN INDICATION
     Dosage: 1080 MILLIGRAM, BID
  30. WARFARIN [Interacting]
     Active Substance: WARFARIN
     Dosage: 90 MILLIGRAM
     Route: 065
     Dates: start: 20181001
  31. WARFARIN [Interacting]
     Active Substance: WARFARIN
     Dosage: 80 MILLIGRAM WEEKLY
     Route: 065
     Dates: start: 20190516
  32. WARFARIN [Interacting]
     Active Substance: WARFARIN
     Dosage: 65 MILLIGRAM WEEKLY
     Route: 065
     Dates: start: 20190716
  33. WARFARIN [Interacting]
     Active Substance: WARFARIN
     Dosage: 65 MILLIGRAM WEEKLY
     Route: 065
     Dates: start: 20190723
  34. WARFARIN [Interacting]
     Active Substance: WARFARIN
     Dosage: 65 MILLIGRAM WEEKLY
     Route: 065
     Dates: start: 20190731
  35. WARFARIN [Interacting]
     Active Substance: WARFARIN
     Dosage: 65 MILLIGRAM WEEKLY
     Route: 065
     Dates: start: 20191022
  36. AZELASTINE. [Concomitant]
     Active Substance: AZELASTINE HYDROCHLORIDE
     Indication: PRODUCT USED FOR UNKNOWN INDICATION
     Route: 045
  37. METHOTREXATE. [Concomitant]
     Active Substance: METHOTREXATE
     Indication: PRODUCT USED FOR UNKNOWN INDICATION
     Dosage: 20 MILLIGRAM WEEKLY
  38. WARFARIN [Interacting]
     Active Substance: WARFARIN
     Indication: DEEP VEIN THROMBOSIS
     Dosage: UNK
     Route: 065
     Dates: start: 201604
  39. WARFARIN [Interacting]
     Active Substance: WARFARIN
     Dosage: 90 MILLIGRAM
     Route: 065
     Dates: start: 20181204
  40. WARFARIN [Interacting]
     Active Substance: WARFARIN
     Dosage: 80 MILLIGRAM WEEKLY
     Route: 065
     Dates: start: 20190226
  41. PREDNISONE. [Concomitant]
     Active Substance: PREDNISONE
     Indication: PRODUCT USED FOR UNKNOWN INDICATION
     Dosage: 20 MILLIGRAM, QD
  42. WARFARIN [Interacting]
     Active Substance: WARFARIN
     Dosage: 90 MILLIGRAM
     Route: 065
     Dates: start: 20181009
  43. WARFARIN [Interacting]
     Active Substance: WARFARIN
     Dosage: 90 MILLIGRAM
     Route: 065
     Dates: start: 20181106
  44. WARFARIN [Interacting]
     Active Substance: WARFARIN
     Dosage: 85 MILLIGRAM WEEKLY
     Route: 065
     Dates: start: 20190115
  45. WARFARIN [Interacting]
     Active Substance: WARFARIN
     Dosage: 75 MILLIGRAM WEEKLY
     Route: 065
     Dates: start: 20190709
  46. WARFARIN [Interacting]
     Active Substance: WARFARIN
     Dosage: 65 MILLIGRAM WEEKLY
     Route: 065
     Dates: start: 20190813
  47. EPIDIOLEX [Suspect]
     Active Substance: CANNABIDIOL
     Indication: PRODUCT USED FOR UNKNOWN INDICATION
     Dosage: 5 MILLIGRAM/KILOGRAM, QD
     Route: 065
     Dates: start: 20190625
  48. ACETAMINOPHEN. [Concomitant]
     Active Substance: ACETAMINOPHEN
     Indication: PRODUCT USED FOR UNKNOWN INDICATION
     Dosage: 1000 MILLIGRAM, BID
  49. MONTELUKAST [Concomitant]
     Active Substance: MONTELUKAST SODIUM
     Indication: PRODUCT USED FOR UNKNOWN INDICATION
     Dosage: 10 MILLIGRAM, QD

REACTIONS (2)
  - International normalised ratio increased [Unknown]
  - Drug interaction [Unknown]
